FAERS Safety Report 5903484-2 (Version None)
Quarter: 2008Q3

REPORT INFORMATION
  Report Type: 
  Country: None (occurrence: None)
  Receive Date: 20080930
  Receipt Date: 20080916
  Transmission Date: 20090109
  Serious: Yes (Death)
  Sender: FDA-Public Use
  Company Number: GB-NOVOPROD-275970

PATIENT
  Sex: Male
  Weight: 73.8 kg

DRUGS (5)
  1. NOVORAPID FLEXPEN [Suspect]
     Indication: DIABETES MELLITUS
     Dosage: 87 IU, QD
     Route: 058
     Dates: start: 20051207
  2. INSULIN DETEMIR FLEXPEN [Suspect]
     Indication: DIABETES MELLITUS
     Dosage: 30 IU, QD
     Route: 058
     Dates: start: 20070124
  3. METFORMIN HCL [Concomitant]
     Dosage: 1700 MG, QD
     Route: 048
     Dates: start: 20051130
  4. SIMVASTATIN [Concomitant]
     Dosage: 20 MG, QD
     Route: 048
     Dates: start: 20051130
  5. ASPIRIN [Concomitant]
     Dosage: 75 MG, QD
     Route: 048
     Dates: start: 20051130

REACTIONS (1)
  - DEATH [None]
